FAERS Safety Report 26117520 (Version 1)
Quarter: 2025Q4

REPORT INFORMATION
  Report Type: Spontaneous
  Country: EU (occurrence: EU)
  Receive Date: 20251203
  Receipt Date: 20251203
  Transmission Date: 20260118
  Serious: Yes (Death)
  Sender: MERCK SHARP & DOHME LLC
  Company Number: None

PATIENT
  Age: 77 Year
  Sex: Male

DRUGS (8)
  1. PEMBROLIZUMAB [Suspect]
     Active Substance: PEMBROLIZUMAB
     Indication: Bladder cancer
     Dosage: 2 MG/KG V
     Route: 065
     Dates: start: 20250930, end: 20250930
  2. SIMVASTATIN [Concomitant]
     Active Substance: SIMVASTATIN
     Indication: Lipid management
     Dosage: STRENGTH: 20 MG
     Dates: start: 20180704
  3. PADCEV [Suspect]
     Active Substance: ENFORTUMAB VEDOTIN-EJFV
     Indication: Bladder cancer
     Dosage: 1.25 MG/KG DAY 1.8
     Route: 042
     Dates: start: 20250930, end: 20250930
  4. OLANZAPINE [Concomitant]
     Active Substance: OLANZAPINE
     Indication: Nausea
     Dosage: ACCORDING TO SPECIAL PRESCRIPTION; STRENGTH: 2.5 MG
     Dates: start: 20250912, end: 20251010
  5. BISOPROLOL FUMARATE [Concomitant]
     Active Substance: BISOPROLOL FUMARATE
     Dosage: STRENGTH: 5 MG AND 4.24 MG
     Dates: start: 20250427, end: 20251009
  6. METHOTREXATE [Concomitant]
     Active Substance: METHOTREXATE
     Indication: Inflammation
     Dates: start: 20210804
  7. ONDANSETRON [Concomitant]
     Active Substance: ONDANSETRON
     Indication: Prophylaxis of nausea and vomiting
     Dosage: ACCORDING TO SPECIAL PRESCRIPTION; STRENGTH: 8 MG
     Dates: start: 20250912, end: 20251010
  8. Folic acid Evolan [Concomitant]
     Indication: Vitamin supplementation
     Dosage: ACCORDING TO SPECIAL PRESCRIPTION; STRENGTH: 5 MG
     Dates: start: 20250902

REACTIONS (4)
  - Immunotoxicity [Fatal]
  - Acute kidney injury [Fatal]
  - Nephritis [Fatal]
  - Stevens-Johnson syndrome [Fatal]

NARRATIVE: CASE EVENT DATE: 20251001
